FAERS Safety Report 15366036 (Version 1)
Quarter: 2018Q3

REPORT INFORMATION
  Report Type: Spontaneous
  Country: US (occurrence: US)
  Receive Date: 20180910
  Receipt Date: 20180910
  Transmission Date: 20181010
  Serious: Yes (Other)
  Sender: FDA-Public Use
  Company Number: US-MYLANLABS-2018M1065490

PATIENT
  Age: 41 Year
  Sex: Male
  Weight: 75 kg

DRUGS (3)
  1. LANSOPRAZOLE DELAYED?RELEASE CAPSULES USP [Suspect]
     Active Substance: LANSOPRAZOLE
     Indication: ABDOMINAL DISCOMFORT
  2. ESCITALOPRAM [Concomitant]
     Active Substance: ESCITALOPRAM OXALATE
     Indication: DEPRESSION
     Dosage: 20 MG, QD
  3. LANSOPRAZOLE DELAYED?RELEASE CAPSULES USP [Suspect]
     Active Substance: LANSOPRAZOLE
     Indication: DYSPEPSIA
     Dosage: UNK UNK, QD
     Route: 048

REACTIONS (2)
  - Incorrect drug administration duration [Unknown]
  - Nephrolithiasis [Recovered/Resolved]

NARRATIVE: CASE EVENT DATE: 201709
